APPROVED DRUG PRODUCT: DOXYCYCLINE HYCLATE
Active Ingredient: DOXYCYCLINE HYCLATE
Strength: EQ 75MG BASE
Dosage Form/Route: TABLET;ORAL
Application: A214356 | Product #001
Applicant: TORRENT PHARMACEUTICALS LTD
Approved: Apr 15, 2024 | RLD: No | RS: No | Type: DISCN